FAERS Safety Report 10274384 (Version 1)
Quarter: 2014Q3

REPORT INFORMATION
  Report Type: Spontaneous
  Country: IN (occurrence: IN)
  Receive Date: 20140702
  Receipt Date: 20140702
  Transmission Date: 20150326
  Serious: Yes (Other)
  Sender: FDA-Public Use
  Company Number: PHHY2014IN080992

PATIENT
  Age: 24 Year
  Sex: Female

DRUGS (7)
  1. DICLOFENAC [Suspect]
     Active Substance: DICLOFENAC
     Indication: LIGAMENT SPRAIN
     Dosage: 75 MG, DAILY
  2. BUPRENORPHINE HYDROCHLORIDE W/NALOXONE HCL [Concomitant]
     Dosage: 1 DF, TID
  3. BUPRENORPHINE HYDROCHLORIDE W/NALOXONE HCL [Concomitant]
     Dosage: 1 DF, BID
  4. TRAMADOL [Suspect]
     Active Substance: TRAMADOL
     Dosage: 800 MG, DAILY
  5. TRAMADOL [Suspect]
     Active Substance: TRAMADOL
     Indication: LIGAMENT SPRAIN
     Dosage: 50 MG, UNK
  6. MIRTAZAPINE. [Concomitant]
     Active Substance: MIRTAZAPINE
     Dosage: 30 MG, DAILY
  7. MIRTAZAPINE. [Concomitant]
     Active Substance: MIRTAZAPINE
     Dosage: 15 MG, AT NIGHT

REACTIONS (14)
  - Lethargy [Unknown]
  - Drug ineffective [Unknown]
  - Nausea [Unknown]
  - Psychomotor skills impaired [Recovering/Resolving]
  - Restlessness [Unknown]
  - Disturbance in attention [Recovering/Resolving]
  - Pain [Unknown]
  - Depressed mood [Recovering/Resolving]
  - Insomnia [Recovering/Resolving]
  - Speech disorder [Unknown]
  - Drug withdrawal syndrome [Unknown]
  - Drug dependence [Unknown]
  - Irritability [Unknown]
  - Memory impairment [Unknown]
